FAERS Safety Report 21995896 (Version 2)
Quarter: 2023Q1

REPORT INFORMATION
  Report Type: Spontaneous
  Country: DE (occurrence: DE)
  Receive Date: 20230215
  Receipt Date: 20230221
  Transmission Date: 20230417
  Serious: Yes (Other)
  Sender: FDA-Public Use
  Company Number: DE-002147023-NVSC2023DE034874

PATIENT
  Age: 17 Year
  Sex: Female

DRUGS (1)
  1. MEKINIST [Suspect]
     Active Substance: TRAMETINIB DIMETHYL SULFOXIDE
     Indication: Neurofibromatosis
     Dosage: UNK
     Route: 065

REACTIONS (3)
  - Multiple sclerosis [Unknown]
  - Gait disturbance [Unknown]
  - Product use in unapproved indication [Unknown]
